FAERS Safety Report 7611464-4 (Version None)
Quarter: 2011Q3

REPORT INFORMATION
  Report Type: 
  Country: None (occurrence: None)
  Receive Date: 20110715
  Receipt Date: 20110711
  Transmission Date: 20111222
  Serious: Yes (Other)
  Sender: FDA-Public Use
  Company Number: US-ROCHE-789609

PATIENT
  Sex: Male

DRUGS (1)
  1. KLONOPIN [Suspect]
     Dosage: FREQUENCY: EVERY 06 HOURS
     Route: 048

REACTIONS (1)
  - CONVULSION [None]
